FAERS Safety Report 14278241 (Version 1)
Quarter: 2017Q4

REPORT INFORMATION
  Report Type: Spontaneous
  Country: US (occurrence: US)
  Receive Date: 20171212
  Receipt Date: 20171212
  Transmission Date: 20180321
  Serious: Yes (Other)
  Sender: FDA-Public Use
  Company Number: US-CONCORDIA PHARMACEUTICALS INC.-GSH201712-006634

PATIENT
  Age: 21 Year
  Sex: Female

DRUGS (5)
  1. HYDRALAZINE [Suspect]
     Active Substance: HYDRALAZINE HYDROCHLORIDE
     Indication: PRE-ECLAMPSIA
  2. FUROSEMIDE. [Suspect]
     Active Substance: FUROSEMIDE
     Indication: PRE-ECLAMPSIA
     Dosage: MULTIPLE DOSES
     Route: 065
  3. NICARDIPINE [Suspect]
     Active Substance: NICARDIPINE
     Indication: PRE-ECLAMPSIA
  4. KAYEXALATE [Suspect]
     Active Substance: SODIUM POLYSTYRENE SULFONATE
     Indication: HYPERKALAEMIA
     Route: 065
  5. LABETALOL [Suspect]
     Active Substance: LABETALOL\LABETALOL HYDROCHLORIDE
     Indication: PRE-ECLAMPSIA

REACTIONS (4)
  - Pre-eclampsia [Unknown]
  - Premature labour [Unknown]
  - Maternal exposure during pregnancy [Unknown]
  - Hypokalaemia [Unknown]
